FAERS Safety Report 10803922 (Version 1)
Quarter: 2015Q1

REPORT INFORMATION
  Report Type: Spontaneous
  Country: TR (occurrence: TR)
  Receive Date: 20150217
  Receipt Date: 20150217
  Transmission Date: 20150721
  Serious: Yes (Hospitalization)
  Sender: FDA-Public Use
  Company Number: TR-BAXTER-2015BAX007439

PATIENT
  Age: 14 Year
  Sex: Male
  Weight: 45 kg

DRUGS (1)
  1. PHYSIONEAL 40 GLUKOZA 1.36% M/V/ 13.6 G/ML [Suspect]
     Active Substance: CALCIUM\DEXTROSE\MAGNESIUM\SODIUM BICARBONATE\SODIUM CHLORIDE\SODIUM LACTATE
     Indication: PERITONEAL DIALYSIS
     Route: 033

REACTIONS (1)
  - Pericardial effusion [Unknown]
